FAERS Safety Report 7660566-5 (Version None)
Quarter: 2011Q3

REPORT INFORMATION
  Report Type: 
  Country: None (occurrence: None)
  Receive Date: 20110805
  Receipt Date: 20101028
  Transmission Date: 20111222
  Serious: No
  Sender: FDA-Public Use
  Company Number: US-ABBOTT-10P-163-0682431-00

PATIENT
  Sex: Male
  Weight: 111.23 kg

DRUGS (6)
  1. DOXAZOSIN MESYLATE [Concomitant]
     Indication: PROSTATOMEGALY
  2. NIASPAN [Suspect]
     Indication: BLOOD TRIGLYCERIDES INCREASED
     Dates: start: 20100401
  3. DETROL LA [Concomitant]
     Indication: PROSTATOMEGALY
  4. ASPIRIN [Concomitant]
     Indication: CARDIAC DISORDER
  5. LISINOPRIL [Concomitant]
     Indication: HYPERTENSION
  6. FENOFIBRATE [Concomitant]
     Indication: BLOOD CHOLESTEROL INCREASED

REACTIONS (6)
  - FLUSHING [None]
  - PARAESTHESIA [None]
  - ERYTHEMA [None]
  - FATIGUE [None]
  - PRURITUS [None]
  - RASH [None]
